FAERS Safety Report 6383419-1 (Version None)
Quarter: 2009Q4

REPORT INFORMATION
  Report Type: 
  Country: None (occurrence: None)
  Receive Date: 20091001
  Receipt Date: 20090921
  Transmission Date: 20100525
  Serious: Yes (Other)
  Sender: FDA-Public Use
  Company Number: US-RANBAXY-2009US-25912

PATIENT

DRUGS (2)
  1. ISOTRETINOIN [Suspect]
     Indication: DRUG USE FOR UNKNOWN INDICATION
     Dosage: 40 MG, QD
     Route: 048
     Dates: start: 20090414, end: 20090501
  2. CLARAVIS [Suspect]
     Indication: DRUG USE FOR UNKNOWN INDICATION
     Dosage: 40 MG, UNK

REACTIONS (6)
  - ABDOMINAL PAIN [None]
  - ABORTION SPONTANEOUS [None]
  - BREAST TENDERNESS [None]
  - POLLAKIURIA [None]
  - PREGNANCY [None]
  - VAGINAL HAEMORRHAGE [None]
